FAERS Safety Report 7930069-9 (Version None)
Quarter: 2011Q4

REPORT INFORMATION
  Report Type: 
  Country: None (occurrence: None)
  Receive Date: 20111117
  Receipt Date: 20111107
  Transmission Date: 20120403
  Serious: Yes (Other)
  Sender: FDA-Public Use
  Company Number: 2011P1010180

PATIENT
  Age: 52 Year
  Sex: Male

DRUGS (4)
  1. MOFETIL [Concomitant]
  2. PREDNISONE [Suspect]
  3. TACROLIMUS [Concomitant]
  4. MYCOPHENOLATE MOFETIL [Concomitant]

REACTIONS (2)
  - MUIR-TORRE SYNDROME [None]
  - SEBACEOUS ADENOMA [None]
